FAERS Safety Report 6349398-8 (Version None)
Quarter: 2009Q3

REPORT INFORMATION
  Report Type: 
  Country: None (occurrence: None)
  Receive Date: 20090911
  Receipt Date: 20090831
  Transmission Date: 20100115
  Serious: Yes (Death)
  Sender: FDA-Public Use
  Company Number: DE-PFIZER INC-2009264940

PATIENT
  Age: 66 Year

DRUGS (7)
  1. ARGATROBAN [Suspect]
     Indication: HEPARIN-INDUCED THROMBOCYTOPENIA
     Dosage: 720 UG/KG, UNK
     Route: 042
     Dates: start: 20090330, end: 20090331
  2. NOREPINEPHRINE BITARTRATE [Concomitant]
     Dosage: 24 MG, 1 MG, 1 IN 1 HR
     Dates: start: 20090327, end: 20090331
  3. CORDAREX [Concomitant]
     Dosage: 300 MG, UNK
     Dates: start: 20090330, end: 20090330
  4. METRONIDAZOLE [Concomitant]
     Dosage: 1000 MG, 2X/DAY
     Dates: start: 20090326, end: 20090331
  5. PANTOPRAZOL [Concomitant]
     Dosage: 80 MG, UNK
     Dates: start: 20090326, end: 20090331
  6. KONAKION [Concomitant]
     Dosage: 20 MG, UNK
     Dates: start: 20090330, end: 20090331
  7. NOVALGIN [Concomitant]
     Dosage: 1.25 G, UNK
     Dates: start: 20090330, end: 20090330

REACTIONS (1)
  - OESOPHAGEAL VARICES HAEMORRHAGE [None]
